FAERS Safety Report 5090624-3 (Version None)
Quarter: 2006Q3

REPORT INFORMATION
  Report Type: 
  Country: None (occurrence: None)
  Receive Date: 20060828
  Receipt Date: 20060818
  Transmission Date: 20061208
  Serious: Yes (Hospitalization, Other)
  Sender: FDA-Public Use
  Company Number: PHFR2006GB02599

PATIENT
  Age: 32 Year
  Sex: Female

DRUGS (3)
  1. OXYTOCIN [Suspect]
     Dosage: 2 IU
     Route: 042
  2. BUPIVACAINE [Concomitant]
     Indication: EPIDURAL ANAESTHESIA
     Dosage: 5MG
     Route: 037
  3. FENTANYL [Concomitant]
     Indication: EPIDURAL ANAESTHESIA
     Dosage: 20MCG
     Route: 037

REACTIONS (3)
  - BLOOD PRESSURE DECREASED [None]
  - HAEMORRHAGE [None]
  - MITRAL VALVE STENOSIS [None]
